FAERS Safety Report 5714341-9 (Version None)
Quarter: 2008Q2

REPORT INFORMATION
  Report Type: 
  Country: None (occurrence: None)
  Receive Date: 20080421
  Receipt Date: 20080409
  Transmission Date: 20081010
  Serious: Yes (Death, Other)
  Sender: FDA-Public Use
  Company Number: 2008-00870

PATIENT
  Sex: Female

DRUGS (1)
  1. VELCADE [Suspect]
     Indication: MULTIPLE MYELOMA
     Dates: start: 20070511

REACTIONS (4)
  - DISEASE PROGRESSION [None]
  - HYPERVISCOSITY SYNDROME [None]
  - LEUKAEMIA PLASMACYTIC [None]
  - PNEUMOCOCCAL SEPSIS [None]
